FAERS Safety Report 9466825 (Version 1)
Quarter: 2013Q3

REPORT INFORMATION
  Report Type: Spontaneous
  Country: US (occurrence: None)
  Receive Date: 20130816
  Receipt Date: 20130816
  Transmission Date: 20140515
  Serious: Yes (Death)
  Sender: FDA-Public Use
  Company Number: UTC-036553

PATIENT
  Age: 48 Year
  Sex: Female
  Weight: 90.9 kg

DRUGS (1)
  1. REMODULIN [Suspect]
     Dosage: 86 UG/KG (0.06 UG/KG, 1 IN 1 MIN) SUBCUTANEOUS
     Route: 058

REACTIONS (1)
  - Death [None]
